APPROVED DRUG PRODUCT: AMPICILLIN SODIUM
Active Ingredient: AMPICILLIN SODIUM
Strength: EQ 2GM BASE/VIAL
Dosage Form/Route: POWDER;INTRAVENOUS
Application: A062738 | Product #002
Applicant: SANDOZ INC
Approved: Feb 19, 1987 | RLD: No | RS: No | Type: DISCN